FAERS Safety Report 9347368 (Version 1)
Quarter: 2013Q2

REPORT INFORMATION
  Report Type: Spontaneous
  Country: US (occurrence: US)
  Receive Date: 20130613
  Receipt Date: 20130613
  Transmission Date: 20140414
  Serious: No
  Sender: FDA-Public Use
  Company Number: US-TEVA-412352USA

PATIENT
  Age: 39 Year
  Sex: Male

DRUGS (1)
  1. COPAXONE [Suspect]
     Indication: MULTIPLE SCLEROSIS
     Dates: start: 20130604

REACTIONS (3)
  - Injection site ulcer [Not Recovered/Not Resolved]
  - Injection site erythema [Not Recovered/Not Resolved]
  - Incorrect drug administration rate [Unknown]
